FAERS Safety Report 7318030-9 (Version None)
Quarter: 2011Q1

REPORT INFORMATION
  Report Type: 
  Country: None (occurrence: None)
  Receive Date: 20110227
  Receipt Date: 20110222
  Transmission Date: 20110831
  Serious: Yes (Hospitalization)
  Sender: FDA-Public Use
  Company Number: AR-BRISTOL-MYERS SQUIBB COMPANY-15568678

PATIENT
  Age: 30 Year
  Sex: Male

DRUGS (4)
  1. ARIPIPRAZOLE [Suspect]
     Indication: SCHIZOPHRENIA
     Route: 048
     Dates: start: 20110125, end: 20110221
  2. HALOPERIDOL [Concomitant]
     Dates: start: 20101020
  3. RISPERIDONE [Concomitant]
     Dates: start: 20090624
  4. LORAZEPAM [Concomitant]
     Dates: start: 20100308

REACTIONS (1)
  - PSYCHOTIC DISORDER [None]
